FAERS Safety Report 9034583 (Version 1)
Quarter: 2013Q1

REPORT INFORMATION
  Report Type: Spontaneous
  Country: US (occurrence: None)
  Receive Date: 20130116
  Receipt Date: 20130116
  Transmission Date: 20140127
  Serious: No
  Sender: FDA-Public Use
  Company Number: None

PATIENT
  Age: 54 Year
  Sex: Female

DRUGS (1)
  1. GLEEVEC (IMATINIB) [Suspect]
     Dates: start: 20100521, end: 20101213

REACTIONS (3)
  - Liver injury [None]
  - Conjunctival haemorrhage [None]
  - Hepatitis acute [None]
